FAERS Safety Report 7858887 (Version 6)
Quarter: 2014Q1

REPORT INFORMATION
  Report Type: Spontaneous
  Country: US (occurrence: US)
  Receive Date: 20110316
  Receipt Date: 20140122
  Transmission Date: 20141002
  Serious: Yes (Hospitalization, Other)
  Sender: FDA-Public Use
  Company Number: US-BAYER-2011-022994

PATIENT
  Age: 30 Year
  Sex: Female
  Weight: 56.69 kg

DRUGS (12)
  1. YAZ [Suspect]
     Indication: CONTRACEPTION
     Dosage: 1 DF, QD
     Dates: start: 200803, end: 200902
  2. YAZ [Suspect]
     Indication: ACNE
  3. YASMIN [Suspect]
  4. OCELLA [Suspect]
  5. ADDERALL [Concomitant]
     Indication: ATTENTION DEFICIT/HYPERACTIVITY DISORDER
     Dosage: STARTED 2006 OR 2007
     Dates: start: 2006
  6. WELLBUTRIN [Concomitant]
     Indication: ATTENTION DEFICIT/HYPERACTIVITY DISORDER
     Dosage: STARTED IN 2006 OR 2007
     Dates: start: 2006
  7. ORTHO TRICYCLEN [Concomitant]
     Indication: CONTRACEPTION
     Dosage: UNK
     Dates: start: 2007
  8. HYDROCHLOROTHIAZIDE [Concomitant]
     Indication: HYPERTENSION
     Dosage: UNK
     Dates: start: 2009
  9. ACCUTANE [Concomitant]
     Indication: ACNE
     Dosage: UNK
     Dates: start: 2008
  10. DOXEPIN [Concomitant]
     Indication: PRODUCT USED FOR UNKNOWN INDICATION
     Dosage: UNK
  11. ZOSYN [Concomitant]
  12. PROMETHAZINE [Concomitant]

REACTIONS (9)
  - Cholelithiasis [None]
  - Bile duct obstruction [None]
  - Injury [None]
  - Cholecystitis chronic [None]
  - Gastrooesophageal reflux disease [None]
  - Malaise [None]
  - Asthenia [None]
  - Pain [None]
  - Emotional distress [None]
